FAERS Safety Report 5195377-6 (Version None)
Quarter: 2006Q4

REPORT INFORMATION
  Report Type: 
  Country: None (occurrence: None)
  Receive Date: 20061229
  Receipt Date: 20061220
  Transmission Date: 20070319
  Serious: Yes (Other)
  Sender: FDA-Public Use
  Company Number: US-PFIZER INC-2006155367

PATIENT
  Sex: Female
  Weight: 69.9 kg

DRUGS (12)
  1. LIPITOR [Suspect]
     Indication: BLOOD CHOLESTEROL INCREASED
  2. TOPROL-XL [Concomitant]
  3. EVISTA [Concomitant]
  4. HYZAAR [Concomitant]
  5. POTASSIUM CHLORIDE [Concomitant]
  6. CALCIUM [Concomitant]
  7. VITAMIN D [Concomitant]
  8. ACIDOPHILUS [Concomitant]
  9. ASPIRIN [Concomitant]
  10. CLONAZEPAM [Concomitant]
  11. TARAXACUM [Concomitant]
  12. VITAMINS [Concomitant]

REACTIONS (6)
  - EYE EXCISION [None]
  - HEPATIC LESION [None]
  - HYPOAESTHESIA [None]
  - INTRAOCULAR MELANOMA [None]
  - LIVER DISORDER [None]
  - MYALGIA [None]
